FAERS Safety Report 19601552 (Version 2)
Quarter: 2021Q3

REPORT INFORMATION
  Report Type: Spontaneous
  Country: US (occurrence: US)
  Receive Date: 20210722
  Receipt Date: 20210825
  Transmission Date: 20211014
  Serious: Yes (Other)
  Sender: FDA-Public Use
  Company Number: US-JNJFOC-20210730722

PATIENT
  Age: 60 Year
  Sex: Female

DRUGS (5)
  1. ELMIRON [Suspect]
     Active Substance: PENTOSAN POLYSULFATE SODIUM
     Indication: CYSTITIS INTERSTITIAL
     Dosage: ONE 100 MG. CAPSULE; 3X/DAY (USUALLY JUST TOOK TWO A DAY UNLESS IC WAS ^FULL BLOWN.^)
     Route: 048
     Dates: start: 200506, end: 20190803
  2. ZEGERID [OMEPRAZOLE] [Concomitant]
     Active Substance: OMEPRAZOLE
     Indication: GASTROOESOPHAGEAL REFLUX DISEASE
     Dates: start: 20080328, end: 202105
  3. ZOLOFT [Concomitant]
     Active Substance: SERTRALINE HYDROCHLORIDE
     Indication: ANXIETY
     Dates: start: 200101
  4. ELMIRON [Suspect]
     Active Substance: PENTOSAN POLYSULFATE SODIUM
     Route: 048
     Dates: start: 20080708, end: 201911
  5. NITROFURANTOIN. [Concomitant]
     Active Substance: NITROFURANTOIN
     Indication: CYSTITIS INTERSTITIAL
     Dates: start: 20050414

REACTIONS (4)
  - Off label use [Unknown]
  - Dry age-related macular degeneration [Recovering/Resolving]
  - Inappropriate schedule of product administration [Unknown]
  - Vitreous detachment [Unknown]

NARRATIVE: CASE EVENT DATE: 200506
